FAERS Safety Report 20162331 (Version 1)
Quarter: 2021Q4

REPORT INFORMATION
  Report Type: Report from Study
  Country: IT (occurrence: IT)
  Receive Date: 20211208
  Receipt Date: 20211208
  Transmission Date: 20220304
  Serious: Yes (Other)
  Sender: FDA-Public Use
  Company Number: IT-TEVA-2021-IT-1984915

PATIENT
  Age: 44 Year
  Sex: Male
  Weight: 74 kg

DRUGS (1)
  1. FINASTERIDE [Suspect]
     Active Substance: FINASTERIDE
     Indication: Androgenetic alopecia
     Route: 065

REACTIONS (1)
  - Post 5-alpha-reductase inhibitor syndrome [Not Recovered/Not Resolved]
